FAERS Safety Report 12162591 (Version 3)
Quarter: 2016Q2

REPORT INFORMATION
  Report Type: Spontaneous
  Country: US (occurrence: US)
  Receive Date: 20160309
  Receipt Date: 20160506
  Transmission Date: 20160815
  Serious: No
  Sender: FDA-Public Use
  Company Number: US-PFIZER INC-2016121977

PATIENT
  Age: 67 Year
  Sex: Female
  Weight: 64 kg

DRUGS (2)
  1. IBRANCE [Suspect]
     Active Substance: PALBOCICLIB
     Dosage: UNK UNK, CYCLIC
  2. IBRANCE [Suspect]
     Active Substance: PALBOCICLIB
     Indication: BREAST CANCER METASTATIC
     Dosage: 125 MG, CYCLIC (ON DAYS 1-21 Q28 DAYS)
     Route: 048
     Dates: start: 20160209

REACTIONS (6)
  - Hypersensitivity [Unknown]
  - Paranasal sinus hypersecretion [Not Recovered/Not Resolved]
  - Renal function test abnormal [Unknown]
  - White blood cell count decreased [Unknown]
  - Myalgia [Not Recovered/Not Resolved]
  - Cough [Unknown]

NARRATIVE: CASE EVENT DATE: 2016
